FAERS Safety Report 16368109 (Version 11)
Quarter: 2020Q3

REPORT INFORMATION
  Report Type: Spontaneous
  Country: JP (occurrence: JP)
  Receive Date: 20190529
  Receipt Date: 20200929
  Transmission Date: 20201102
  Serious: Yes (Life-Threatening, Hospitalization, Other)
  Sender: FDA-Public Use
  Company Number: JP-BRISTOL-MYERS SQUIBB COMPANY-BMS-2019-049845

PATIENT
  Age: 57 Year
  Sex: Male
  Weight: 42 kg

DRUGS (4)
  1. TAKECAB [Concomitant]
     Active Substance: VONOPRAZAN FUMARATE
     Indication: PROPHYLAXIS
     Dosage: 10 MILLIGRAM, QD
     Route: 048
  2. OPDIVO [Suspect]
     Active Substance: NIVOLUMAB
     Indication: RENAL CELL CARCINOMA
     Dosage: UNK
     Route: 041
     Dates: start: 20190124, end: 20190314
  3. YERVOY [Suspect]
     Active Substance: IPILIMUMAB
     Indication: RENAL CELL CARCINOMA
     Dosage: UNK
     Route: 041
     Dates: start: 20190124, end: 20190314
  4. E KEPPRA [Concomitant]
     Active Substance: LEVETIRACETAM
     Indication: RENAL CELL CARCINOMA
     Dosage: 500 MILLIGRAM, BID
     Route: 048

REACTIONS (6)
  - Adrenal insufficiency [Recovering/Resolving]
  - Hypopituitarism [Recovering/Resolving]
  - Hypophysitis [Recovering/Resolving]
  - Hyperthyroidism [Recovered/Resolved]
  - Malignant neoplasm progression [Unknown]
  - Blood corticotrophin decreased [Recovering/Resolving]

NARRATIVE: CASE EVENT DATE: 20190404
